FAERS Safety Report 7776121-2 (Version None)
Quarter: 2011Q3

REPORT INFORMATION
  Report Type: 
  Country: None (occurrence: None)
  Receive Date: 20110925
  Receipt Date: 20090120
  Transmission Date: 20111222
  Serious: No
  Sender: FDA-Public Use
  Company Number: PHHY2009TW60893

PATIENT
  Sex: Female

DRUGS (2)
  1. GLEEVEC [Suspect]
     Indication: GASTROINTESTINAL STROMAL TUMOUR
     Dosage: UNK UKN, UNK
  2. GLEEVEC [Suspect]
     Dosage: 4 DF, UNK

REACTIONS (6)
  - LOCAL SWELLING [None]
  - DEPRESSION [None]
  - POOR QUALITY SLEEP [None]
  - MATERNAL EXPOSURE DURING PREGNANCY [None]
  - ALOPECIA [None]
  - MENORRHAGIA [None]
